FAERS Safety Report 6916964-8 (Version None)
Quarter: 2010Q3

REPORT INFORMATION
  Report Type: 
  Country: None (occurrence: None)
  Receive Date: 20100810
  Receipt Date: 20100730
  Transmission Date: 20110219
  Serious: Yes (Hospitalization)
  Sender: FDA-Public Use
  Company Number: A0815203A

PATIENT
  Sex: Female

DRUGS (3)
  1. AVANDIA [Suspect]
     Indication: DIABETES MELLITUS
     Dosage: 2MG PER DAY
     Route: 048
     Dates: start: 20051219, end: 20060927
  2. AVANDAMET [Suspect]
     Route: 048
     Dates: start: 20040508, end: 20051201
  3. AVANDARYL [Suspect]
     Route: 048
     Dates: start: 20061012, end: 20061012

REACTIONS (3)
  - CEREBROVASCULAR ACCIDENT [None]
  - FALL [None]
  - RIB FRACTURE [None]
